FAERS Safety Report 9580710 (Version 1)
Quarter: 2013Q3

REPORT INFORMATION
  Report Type: Spontaneous
  Country: US (occurrence: None)
  Receive Date: 20130930
  Receipt Date: 20130930
  Transmission Date: 20140515
  Serious: Yes (Life-Threatening, Hospitalization)
  Sender: FDA-Public Use
  Company Number: 2013P1019536

PATIENT
  Age: 50 Year
  Sex: Female
  Weight: 103 kg

DRUGS (12)
  1. LITHIUM [Suspect]
  2. METHYLENE BLUE [Suspect]
     Indication: PARATHYROID DISORDER
  3. INSULIN [Concomitant]
  4. ATENOLOL [Concomitant]
  5. VERAPAMIL [Concomitant]
  6. SYNTHROID (LEVOTHYROXINE) [Concomitant]
  7. GABAPENTIN [Concomitant]
  8. OXYBUTYNIN [Concomitant]
  9. LORAZEPAM [Concomitant]
  10. SIMVASTATIN [Concomitant]
  11. CARBAMAZEPINE [Concomitant]
  12. LAMOTRIGINE [Concomitant]

REACTIONS (13)
  - Blood parathyroid hormone decreased [None]
  - Procedural complication [None]
  - Diabetes insipidus [None]
  - Chromaturia [None]
  - Cardio-respiratory arrest [None]
  - Toxic encephalopathy [None]
  - Pyrexia [None]
  - Chills [None]
  - Hyperhidrosis [None]
  - Serotonin syndrome [None]
  - Infusion related reaction [None]
  - Post procedural complication [None]
  - Drug interaction [None]
